FAERS Safety Report 4939600-9 (Version None)
Quarter: 2006Q1

REPORT INFORMATION
  Report Type: 
  Country: None (occurrence: None)
  Receive Date: 20060310
  Receipt Date: 20060303
  Transmission Date: 20060701
  Serious: Yes (Death)
  Sender: FDA-Public Use
  Company Number: US-MERCK-0603USA01014

PATIENT
  Age: 87 Year
  Sex: Male

DRUGS (1)
  1. VIOXX [Suspect]
     Route: 048
     Dates: start: 20030501, end: 20040301

REACTIONS (4)
  - CARDIAC ARREST [None]
  - EMPHYSEMA [None]
  - LUNG DISORDER [None]
  - PNEUMONIA ASPIRATION [None]
